FAERS Safety Report 6084679-7 (Version None)
Quarter: 2009Q1

REPORT INFORMATION
  Report Type: 
  Country: None (occurrence: None)
  Receive Date: 20090219
  Receipt Date: 20090213
  Transmission Date: 20090719
  Serious: Yes (Hospitalization)
  Sender: FDA-Public Use
  Company Number: JP-MERCK-0901USA02659

PATIENT
  Age: 10 Year
  Sex: Male

DRUGS (4)
  1. PEPCID [Suspect]
     Indication: RENAL FAILURE CHRONIC
     Route: 042
     Dates: start: 20090106
  2. PEPCID [Suspect]
     Route: 042
     Dates: start: 20090101
  3. NAFAMOSTAT [Concomitant]
     Route: 065
     Dates: start: 20081225
  4. [THERAPY UNSPECIFIED] [Suspect]
     Route: 065

REACTIONS (1)
  - RENAL IMPAIRMENT [None]
